FAERS Safety Report 5508843-8 (Version None)
Quarter: 2007Q4

REPORT INFORMATION
  Report Type: 
  Country: None (occurrence: None)
  Receive Date: 20071105
  Receipt Date: 20071105
  Transmission Date: 20080405
  Serious: Yes (Other)
  Sender: FDA-Public Use
  Company Number: None

PATIENT

DRUGS (2)
  1. SERTRALINE [Suspect]
     Indication: DEPRESSION
     Dosage: ONE TABLET  DAILY  PO
     Route: 048
     Dates: start: 20070416, end: 20071029
  2. SERTRALINE [Suspect]
     Indication: DEPRESSION
     Dosage: ONE TABLET DAILY  PO
     Route: 048
     Dates: start: 20070416, end: 20070601

REACTIONS (7)
  - ANGER [None]
  - DEPRESSION [None]
  - DISTURBANCE IN ATTENTION [None]
  - MOOD ALTERED [None]
  - PHARMACEUTICAL PRODUCT COMPLAINT [None]
  - SUICIDAL IDEATION [None]
  - TEARFULNESS [None]
